FAERS Safety Report 6266378-1 (Version None)
Quarter: 2009Q3

REPORT INFORMATION
  Report Type: 
  Country: None (occurrence: None)
  Receive Date: 20090713
  Receipt Date: 20090703
  Transmission Date: 20100115
  Serious: Yes (Hospitalization)
  Sender: FDA-Public Use
  Company Number: US-AMGEN-QUU353341

PATIENT
  Sex: Female
  Weight: 73.1 kg

DRUGS (2)
  1. ENBREL [Suspect]
     Indication: PSORIATIC ARTHROPATHY
     Route: 058
     Dates: start: 20080714
  2. METHOTREXATE SODIUM [Concomitant]
     Route: 048

REACTIONS (1)
  - HISTOPLASMOSIS DISSEMINATED [None]
